FAERS Safety Report 16813578 (Version 2)
Quarter: 2021Q1

REPORT INFORMATION
  Report Type: Other
  Country: US (occurrence: US)
  Receive Date: 20190917
  Receipt Date: 20210313
  Transmission Date: 20210419
  Serious: Yes (Hospitalization)
  Sender: FDA-Public Use
  Company Number: US-ROCHE-2403335

PATIENT
  Age: 71 Year
  Sex: Female
  Weight: 105.33 kg

DRUGS (20)
  1. CALCIUM [Concomitant]
     Active Substance: CALCIUM
     Route: 048
  2. SINGULAIR [Concomitant]
     Active Substance: MONTELUKAST SODIUM
     Route: 048
  3. DULERA [Concomitant]
     Active Substance: FORMOTEROL FUMARATE DIHYDRATE\MOMETASONE FUROATE
  4. FLAGYL [Concomitant]
     Active Substance: METRONIDAZOLE\METRONIDAZOLE HYDROCHLORIDE
  5. BREO ELLIPTA [Concomitant]
     Active Substance: FLUTICASONE FUROATE\VILANTEROL TRIFENATATE
  6. XOLAIR [Suspect]
     Active Substance: OMALIZUMAB
     Indication: ASTHMA
     Route: 058
     Dates: start: 201807
  7. XOLAIR [Suspect]
     Active Substance: OMALIZUMAB
  8. NORVASC [Concomitant]
     Active Substance: AMLODIPINE BESYLATE
     Indication: HYPERTENSION
     Route: 048
  9. PEPCID [Concomitant]
     Active Substance: FAMOTIDINE
     Route: 048
  10. XOLAIR [Suspect]
     Active Substance: OMALIZUMAB
  11. BRIOSCHI [Concomitant]
     Dosage: 200/25 1 PUFF
     Route: 055
  12. HYDROCHLOROTHIAZIDE. [Concomitant]
     Active Substance: HYDROCHLOROTHIAZIDE
     Indication: HYPERTENSION
     Route: 048
  13. PROLIA [Concomitant]
     Active Substance: DENOSUMAB
     Route: 058
  14. XOLAIR [Suspect]
     Active Substance: OMALIZUMAB
     Indication: ASTHMA
  15. ATENOLOL. [Concomitant]
     Active Substance: ATENOLOL
     Indication: HYPERTENSION
     Route: 048
  16. ZYRTEC (UNITED STATES) [Concomitant]
     Indication: SEASONAL ALLERGY
     Route: 048
  17. XOLAIR [Suspect]
     Active Substance: OMALIZUMAB
  18. XOLAIR [Suspect]
     Active Substance: OMALIZUMAB
  19. ALBUTEROL. [Concomitant]
     Active Substance: ALBUTEROL
  20. MONTELUKAST [Concomitant]
     Active Substance: MONTELUKAST SODIUM

REACTIONS (3)
  - Pneumonia [Recovered/Resolved]
  - Illness [Not Recovered/Not Resolved]
  - Asthma [Recovered/Resolved]

NARRATIVE: CASE EVENT DATE: 20190821
